FAERS Safety Report 6640453-1 (Version None)
Quarter: 2010Q1

REPORT INFORMATION
  Report Type: 
  Country: None (occurrence: None)
  Receive Date: 20100318
  Receipt Date: 20100309
  Transmission Date: 20100710
  Serious: Yes (Death, Life-Threatening, Hospitalization)
  Sender: FDA-Public Use
  Company Number: DE-PFIZER INC-2010029967

PATIENT
  Age: 71 Year
  Sex: Male

DRUGS (25)
  1. DIFLUCAN [Suspect]
     Indication: STOMATITIS
     Dosage: 200 MG, 1X/DAY
     Route: 048
     Dates: start: 20070730, end: 20070802
  2. METOCLOPRAMIDE [Suspect]
     Indication: NAUSEA
     Dosage: 10 GTT, 1X/DAY
     Route: 048
     Dates: start: 20070726, end: 20070727
  3. METOCLOPRAMIDE [Suspect]
     Dosage: 10 GTT, 1X/DAY
     Route: 048
     Dates: start: 20070730, end: 20070802
  4. DECORTIN-H [Suspect]
     Indication: PULMONARY FIBROSIS
     Dosage: 20 MG, UNK
     Route: 048
     Dates: start: 20070707
  5. SPIRIVA [Suspect]
     Indication: CHRONIC OBSTRUCTIVE PULMONARY DISEASE
     Dosage: 18 UG, 1X/DAY
     Route: 055
     Dates: start: 20070803
  6. ATROVENT [Suspect]
     Indication: PULMONARY FIBROSIS
     Dosage: UNK
     Route: 055
     Dates: start: 20070711, end: 20070802
  7. NEXIUM [Suspect]
     Indication: GASTROOESOPHAGEAL REFLUX PROPHYLAXIS
     Dosage: 200 MG, 1X/DAY
     Route: 048
     Dates: start: 20070703, end: 20070802
  8. MELPERONE [Suspect]
     Indication: SEDATION
     Dosage: 5 ML, 1X/DAY
     Route: 048
     Dates: start: 20070711, end: 20070802
  9. AMPHOTERICIN B [Suspect]
     Indication: CANDIDIASIS
     Dosage: 4X1ML
     Route: 061
     Dates: start: 20070717
  10. SULTANOL [Suspect]
     Indication: PULMONARY FIBROSIS
     Dosage: 1 DF, 4X/DAY
     Route: 055
     Dates: start: 20070711
  11. IDEOS [Suspect]
     Indication: OSTEOPOROSIS PROPHYLAXIS
     Dosage: 1 DF, 2X/DAY
     Dates: start: 20070703
  12. SODIUM CHLORIDE [Suspect]
     Indication: VOLUME BLOOD DECREASED
     Dosage: UNK
     Route: 042
     Dates: start: 20070725, end: 20070802
  13. TAVANIC [Suspect]
     Indication: PNEUMONIA
     Dosage: 500 MG, 1X/DAY
     Route: 048
     Dates: start: 20070730, end: 20070802
  14. FLUCONAZOLE [Suspect]
     Indication: CANDIDIASIS
     Dosage: 200 MG, 1X/DAY
     Route: 048
     Dates: start: 20070803, end: 20070811
  15. MARCUMAR [Suspect]
     Indication: THROMBOSIS PROPHYLAXIS
     Dosage: UNK
     Route: 048
     Dates: start: 20070803
  16. OMEPRAZOL ^STADA^ [Suspect]
     Indication: GASTROOESOPHAGEAL REFLUX PROPHYLAXIS
     Dosage: 40 MG, UNK
     Route: 048
     Dates: start: 20070803
  17. TETAGAM [Concomitant]
     Indication: IMMUNISATION
     Dosage: UNK
     Route: 030
     Dates: start: 20070717, end: 20070717
  18. COTRIM DS [Concomitant]
     Indication: PNEUMONIA
     Dosage: 3-2-2
     Route: 048
     Dates: start: 20070711, end: 20070717
  19. EMBOLEX [Concomitant]
     Indication: THROMBOSIS PROPHYLAXIS
     Dosage: 0.5 ML, 1X/DAY
     Route: 058
     Dates: start: 20070711, end: 20070719
  20. PLATELETS, HUMAN BLOOD [Concomitant]
     Indication: PLATELET TRANSFUSION
     Dosage: UNK
     Route: 042
     Dates: start: 20070718, end: 20070718
  21. TAZOBAC [Concomitant]
     Indication: PNEUMONIA
     Dosage: 4.5 G, 3X/DAY
     Route: 042
     Dates: start: 20070720, end: 20070727
  22. TEPILTA [Concomitant]
     Indication: GASTRITIS
     Dosage: 1 DF, 4X/DAY
     Route: 048
     Dates: start: 20070720, end: 20070727
  23. CAPVAL [Concomitant]
     Indication: COUGH
     Dosage: UNK
     Route: 048
     Dates: start: 20070725, end: 20070725
  24. DORMICUM TABLET ^ROCHE^ [Concomitant]
     Indication: BRONCHOSCOPY
     Dosage: 2 MG, UNK
     Route: 048
     Dates: start: 20070725, end: 20070725
  25. DYSURGAL [Concomitant]
     Indication: BRONCHOSCOPY
     Dosage: 0.5 MG, UNK
     Dates: start: 20070725, end: 20070725

REACTIONS (1)
  - TOXIC EPIDERMAL NECROLYSIS [None]
